FAERS Safety Report 9738454 (Version 2)
Quarter: 2013Q4

REPORT INFORMATION
  Report Type: Spontaneous
  Country: SE (occurrence: SE)
  Receive Date: 20131208
  Receipt Date: 20131208
  Transmission Date: 20140711
  Serious: Yes (Other)
  Sender: FDA-Public Use
  Company Number: SE-SA-2013SA095898

PATIENT
  Sex: Female

DRUGS (1)
  1. TAXOTERE [Suspect]
     Indication: BREAST CANCER
     Route: 065

REACTIONS (3)
  - Colitis [Unknown]
  - Colitis [Unknown]
  - Neutrophil count decreased [Unknown]
